FAERS Safety Report 23441692 (Version 2)
Quarter: 2024Q1

REPORT INFORMATION
  Report Type: Report from Study
  Country: JP (occurrence: JP)
  Receive Date: 20240125
  Receipt Date: 20240318
  Transmission Date: 20240410
  Serious: Yes (Hospitalization)
  Sender: FDA-Public Use
  Company Number: JP-HORIZON THERAPEUTICS-HZN-2022-001817

PATIENT

DRUGS (23)
  1. UPLIZNA [Suspect]
     Active Substance: INEBILIZUMAB-CDON
     Indication: Neuromyelitis optica spectrum disorder
     Dosage: 300 MG, QD
     Route: 041
     Dates: start: 20220210
  2. UPLIZNA [Suspect]
     Active Substance: INEBILIZUMAB-CDON
     Dosage: 300 MG, QD
     Route: 041
     Dates: start: 20220224
  3. UPLIZNA [Suspect]
     Active Substance: INEBILIZUMAB-CDON
     Dosage: 300 MG, QD
     Route: 041
     Dates: start: 20220810
  4. UPLIZNA [Suspect]
     Active Substance: INEBILIZUMAB-CDON
     Dosage: 300 MG, QD
     Route: 041
     Dates: start: 20230210
  5. UPLIZNA [Suspect]
     Active Substance: INEBILIZUMAB-CDON
     Dosage: 300 MG, QD
     Route: 041
     Dates: start: 20230818
  6. UPLIZNA [Suspect]
     Active Substance: INEBILIZUMAB-CDON
     Dosage: 300 MG, QD
     Route: 041
     Dates: start: 20240228
  7. PREDONINE [Suspect]
     Active Substance: PREDNISOLONE
     Indication: Neuromyelitis optica spectrum disorder
     Dosage: 15 MG, QD, ORAL USE
     Route: 048
     Dates: end: 20220624
  8. PREDONINE [Suspect]
     Active Substance: PREDNISOLONE
     Dosage: 12.5 MG, QD, ORAL USE
     Route: 048
     Dates: start: 20220625, end: 20220810
  9. PREDONINE [Suspect]
     Active Substance: PREDNISOLONE
     Dosage: 10 MG, QD, ORAL USE
     Route: 048
     Dates: start: 20220811, end: 20230210
  10. PREDONINE [Suspect]
     Active Substance: PREDNISOLONE
     Dosage: 5 MG, QD, ORAL USE
     Route: 048
     Dates: start: 20230211, end: 20230818
  11. BETHANECHOL CHLORIDE [Concomitant]
     Active Substance: BETHANECHOL CHLORIDE
     Indication: Neurogenic bladder
     Dosage: UNK
     Route: 048
     Dates: start: 20220218, end: 20220624
  12. CARBAMAZEPINE [Concomitant]
     Active Substance: CARBAMAZEPINE
     Indication: Neuromyelitis optica spectrum disorder
     Dosage: UNK
     Route: 065
  13. RIVOTRIL [Concomitant]
     Active Substance: CLONAZEPAM
     Indication: Neuromyelitis optica spectrum disorder
     Dosage: UNK
     Route: 065
  14. LEVETIRACETAM [Concomitant]
     Active Substance: LEVETIRACETAM
     Indication: Neuromyelitis optica spectrum disorder
     Dosage: UNK
     Route: 065
  15. ALFACALCIDOL [Concomitant]
     Active Substance: ALFACALCIDOL
     Indication: Prophylaxis
     Dosage: UNK
     Route: 065
     Dates: end: 20220418
  16. REBAMIPIDE [Concomitant]
     Active Substance: REBAMIPIDE
     Indication: Prophylaxis
     Dosage: UNK
     Route: 065
  17. ACTONEL [Concomitant]
     Active Substance: RISEDRONATE SODIUM
     Indication: Prophylaxis
     Dosage: UNK
     Route: 065
     Dates: end: 20220404
  18. VONOPRAZAN FUMARATE [Concomitant]
     Active Substance: VONOPRAZAN FUMARATE
     Indication: Prophylaxis
     Dosage: UNK
     Route: 065
  19. LEVETIRACETAM [Concomitant]
     Active Substance: LEVETIRACETAM
     Indication: Neuromyelitis optica spectrum disorder
     Dosage: UNK
     Route: 065
     Dates: end: 20230512
  20. CYMBALTA [Concomitant]
     Active Substance: DULOXETINE HYDROCHLORIDE
     Indication: Neuromyelitis optica spectrum disorder
     Dosage: UNK
     Dates: start: 20221130, end: 20230512
  21. CALONAL [Concomitant]
     Active Substance: ACETAMINOPHEN
     Indication: Neuromyelitis optica spectrum disorder
     Dosage: UNK
     Route: 065
     Dates: start: 20230512, end: 20231108
  22. PREDNISOLONE [Concomitant]
     Active Substance: PREDNISOLONE
     Indication: Neuromyelitis optica spectrum disorder
     Dosage: UNK
     Route: 065
     Dates: start: 20230211, end: 20230512
  23. DISTIGMINE BROMIDE [Concomitant]
     Active Substance: DISTIGMINE BROMIDE
     Indication: Dysuria
     Dosage: UNK
     Route: 065
     Dates: start: 20231111

REACTIONS (6)
  - COVID-19 [Recovered/Resolved]
  - Constipation [Recovering/Resolving]
  - Lumbar vertebral fracture [Recovered/Resolved]
  - Costal cartilage fracture [Recovering/Resolving]
  - Off label use [Unknown]
  - Off label use [Unknown]

NARRATIVE: CASE EVENT DATE: 20220210
